FAERS Safety Report 6936674-0 (Version None)
Quarter: 2010Q3

REPORT INFORMATION
  Report Type: 
  Country: None (occurrence: None)
  Receive Date: 20100823
  Receipt Date: 20100820
  Transmission Date: 20110219
  Serious: Yes (Hospitalization)
  Sender: FDA-Public Use
  Company Number: IT-ROCHE-722387

PATIENT
  Age: 57 Year
  Sex: Female

DRUGS (2)
  1. XELODA [Suspect]
     Indication: ADENOCARCINOMA
     Route: 048
     Dates: start: 20100810, end: 20100818
  2. OXALIPLATIN [Concomitant]
     Route: 042

REACTIONS (2)
  - ACUTE CORONARY SYNDROME [None]
  - TROPONIN T INCREASED [None]
